FAERS Safety Report 5639727-2 (Version None)
Quarter: 2008Q1

REPORT INFORMATION
  Report Type: 
  Country: None (occurrence: None)
  Receive Date: 20080131
  Receipt Date: 20071207
  Transmission Date: 20080703
  Serious: Yes (Hospitalization)
  Sender: FDA-Public Use
  Company Number: 163-21880-07110402

PATIENT
  Age: 83 Year
  Sex: Male
  Weight: 78.9 kg

DRUGS (7)
  1. REVLIMID [Suspect]
     Indication: CHRONIC LYMPHOCYTIC LEUKAEMIA
     Dosage: SEE IMAGE
     Route: 048
     Dates: start: 20071008, end: 20071104
  2. REVLIMID [Suspect]
     Indication: CHRONIC LYMPHOCYTIC LEUKAEMIA
     Dosage: SEE IMAGE
     Route: 048
     Dates: start: 20071129, end: 20071203
  3. PLAVIX [Concomitant]
  4. ASPIRIN [Concomitant]
  5. PROTONIX [Concomitant]
  6. ALLOPURINOL [Concomitant]
  7. VALTREX [Concomitant]

REACTIONS (1)
  - PYREXIA [None]
